FAERS Safety Report 23350656 (Version 1)
Quarter: 2023Q4

REPORT INFORMATION
  Report Type: Spontaneous
  Country: CN (occurrence: CN)
  Receive Date: 20231229
  Receipt Date: 20231229
  Transmission Date: 20240110
  Serious: Yes (Hospitalization, Other)
  Sender: FDA-Public Use
  Company Number: CN-LAURUS LABS LIMITED-2023LAU000123

PATIENT
  Sex: Female

DRUGS (1)
  1. HYDROXYCHLOROQUINE [Suspect]
     Active Substance: HYDROXYCHLOROQUINE
     Indication: Sjogren^s syndrome
     Dosage: 200 MILLIGRAM, QD
     Route: 048

REACTIONS (3)
  - Impetigo herpetiformis [Recovered/Resolved]
  - Maternal exposure during pregnancy [Unknown]
  - Product use in unapproved indication [Unknown]
